FAERS Safety Report 12742898 (Version 1)
Quarter: 2016Q3

REPORT INFORMATION
  Report Type: Spontaneous
  Country: DK (occurrence: DK)
  Receive Date: 20160914
  Receipt Date: 20160914
  Transmission Date: 20161109
  Serious: Yes (Congenital Anomaly, Other)
  Sender: FDA-Public Use
  Company Number: DK-MYLANLABS-2016M1039296

PATIENT

DRUGS (1)
  1. CITALOPRAM [Suspect]
     Active Substance: CITALOPRAM HYDROBROMIDE
     Dosage: UNK
     Route: 064

REACTIONS (3)
  - Abdominal compartment syndrome [Unknown]
  - Congenital megacolon [Unknown]
  - Foetal exposure during pregnancy [Unknown]
